FAERS Safety Report 8420250 (Version 3)
Quarter: 2012Q4

REPORT INFORMATION
  Report Type: 
  Country: US (occurrence: US)
  Receive Date: 20120222
  Receipt Date: 20121017
  Transmission Date: 20130627
  Serious: Yes (Other)
  Sender: FDA-Public Use
  Company Number: US-PFIZER INC-2012043082

PATIENT
  Age: 67 Year
  Sex: Female
  Weight: 57 kg

DRUGS (2)
  1. LYRICA [Suspect]
     Indication: NEURALGIA
     Dosage: 75 mg, 1x/day
     Route: 048
     Dates: start: 2011, end: 201201
  2. LYRICA [Suspect]
     Dosage: 75 mg, 3x/day
     Route: 048
     Dates: start: 201201, end: 2012

REACTIONS (11)
  - Aphagia [Recovered/Resolved]
  - Struck by lightning [Recovered/Resolved]
  - Oral disorder [Recovered/Resolved]
  - Asthenia [Recovered/Resolved]
  - Neuralgia [Recovered/Resolved]
  - Condition aggravated [Recovered/Resolved]
  - Fatigue [Recovered/Resolved]
  - Facial pain [Recovered/Resolved]
  - Facial nerve disorder [Recovered/Resolved]
  - Neuropathy peripheral [Recovered/Resolved]
  - Skin irritation [Recovered/Resolved]
